FAERS Safety Report 8432390-7 (Version None)
Quarter: 2012Q2

REPORT INFORMATION
  Report Type: 
  Country: None (occurrence: None)
  Receive Date: 20120613
  Receipt Date: 20120601
  Transmission Date: 20120825
  Serious: Yes (Other)
  Sender: FDA-Public Use
  Company Number: IT-SANOFI-AVENTIS-2012SA039067

PATIENT
  Age: 61 Year
  Sex: Male

DRUGS (1)
  1. CLOPIDOGREL BISULFATE [Suspect]
     Route: 048
     Dates: start: 20120326, end: 20120428

REACTIONS (9)
  - STOMATITIS [None]
  - LYMPHADENOPATHY [None]
  - MIGRAINE [None]
  - OEDEMA PERIPHERAL [None]
  - MYALGIA [None]
  - BACK PAIN [None]
  - ONYCHOMADESIS [None]
  - VERTIGO [None]
  - ABDOMINAL PAIN [None]
